FAERS Safety Report 20553204 (Version 1)
Quarter: 2022Q1

REPORT INFORMATION
  Report Type: Spontaneous
  Country: US (occurrence: None)
  Receive Date: 20220304
  Receipt Date: 20220304
  Transmission Date: 20220423
  Serious: Yes (unspecified)
  Sender: FDA-Public Use
  Company Number: None

PATIENT
  Age: 49 Year
  Sex: Male
  Weight: 105 kg

DRUGS (1)
  1. KETOCONAZOLE [Suspect]
     Active Substance: KETOCONAZOLE
     Indication: Skin exfoliation
     Dosage: FREQUENCY : TWICE A DAY;?
     Route: 061
     Dates: start: 20211027, end: 20211027

REACTIONS (3)
  - Application site vesicles [None]
  - Burning sensation [None]
  - Rash [None]

NARRATIVE: CASE EVENT DATE: 20211028
